FAERS Safety Report 4568334-8 (Version None)
Quarter: 2005Q1

REPORT INFORMATION
  Report Type: 
  Country: None (occurrence: None)
  Receive Date: 20050131
  Receipt Date: 20050113
  Transmission Date: 20050727
  Serious: Yes (Death)
  Sender: FDA-Public Use
  Company Number: S05-NLD-00282-01

PATIENT
  Age: 84 Year
  Sex: Female

DRUGS (8)
  1. CITALOPRAM HYDROBROMIDE [Suspect]
     Indication: DEPRESSION
     Dosage: 20 MG QD PO
     Route: 048
     Dates: start: 20041015, end: 20041124
  2. CAPTOPRILUM (CAPTOPRIL) [Concomitant]
  3. ISOSORBIDE DINITRATE [Concomitant]
  4. FUROSEMIDE [Concomitant]
  5. METFORMIN HCL [Concomitant]
  6. INSULIN ISOPHANE BW (INSULIN INJECTION, ISOPHANE) [Concomitant]
  7. TEMAZEPAM [Concomitant]
  8. OMEPRAZOLE [Concomitant]

REACTIONS (4)
  - ACCOMMODATION DISORDER [None]
  - CARDIAC DEATH [None]
  - DYSPNOEA [None]
  - MYOCARDIAL INFARCTION [None]
